FAERS Safety Report 11875533 (Version 1)
Quarter: 2015Q4

REPORT INFORMATION
  Report Type: Spontaneous
  Country: JP (occurrence: JP)
  Receive Date: 20151229
  Receipt Date: 20151229
  Transmission Date: 20160305
  Serious: Yes (Other)
  Sender: FDA-Public Use
  Company Number: JP-SA-2015SA217349

PATIENT
  Age: 70 Year
  Sex: Male

DRUGS (4)
  1. LEVOFOLINATE [Suspect]
     Active Substance: LEVOLEUCOVORIN CALCIUM
     Indication: COLON CANCER
     Dosage: INTRAVENOUS INFUSION
     Route: 041
     Dates: start: 2014
  2. ELPLAT [Suspect]
     Active Substance: OXALIPLATIN
     Indication: COLON CANCER
     Dosage: INTRAVENOUS INFUSION
     Route: 041
     Dates: start: 2014
  3. 5-FU [Concomitant]
     Active Substance: FLUOROURACIL
     Dosage: BOLUS
     Dates: start: 2014
  4. AVASTIN [Concomitant]
     Active Substance: BEVACIZUMAB
     Dates: start: 2014

REACTIONS (1)
  - Hepatic cirrhosis [Unknown]
